FAERS Safety Report 4523782-7 (Version None)
Quarter: 2004Q4

REPORT INFORMATION
  Report Type: 
  Country: None (occurrence: None)
  Receive Date: 20041101
  Receipt Date: 20040414
  Transmission Date: 20050328
  Serious: Yes (Other)
  Sender: FDA-Public Use
  Company Number: HQWYE467715APR04

PATIENT
  Age: 54 Year
  Sex: Female
  Weight: 65.38 kg

DRUGS (3)
  1. PREMARIN [Suspect]
     Indication: MENOPAUSE
     Dosage: 0.625 MG DAILY - 0.3 MG DAILY, ORAL
     Route: 048
     Dates: start: 19940101, end: 20031101
  2. PROVERA [Concomitant]
  3. AMITRIPTYLINE HCL [Concomitant]

REACTIONS (10)
  - BLOOD PRESSURE INCREASED [None]
  - CHEST PAIN [None]
  - DYSPNOEA [None]
  - FATIGUE [None]
  - FLUSHING [None]
  - HEADACHE [None]
  - HYPOAESTHESIA [None]
  - PAIN IN EXTREMITY [None]
  - POLLAKIURIA [None]
  - SKIN BURNING SENSATION [None]
